FAERS Safety Report 7710613-7 (Version None)
Quarter: 2011Q3

REPORT INFORMATION
  Report Type: 
  Country: None (occurrence: None)
  Receive Date: 20110825
  Receipt Date: 20110818
  Transmission Date: 20111222
  Serious: Yes (Death, Hospitalization, Other)
  Sender: FDA-Public Use
  Company Number: US-PFIZER INC-2007036935

PATIENT
  Sex: Female

DRUGS (4)
  1. MAVIK [Concomitant]
     Dosage: 4 MG, 1X/DAY
  2. FERROUS SULFATE TAB [Concomitant]
     Dosage: UNK
  3. NEURONTIN [Suspect]
     Indication: DEPRESSION
     Dosage: 300 MG, 3X/DAY
     Dates: start: 20021025
  4. TRIAMTERENE AND HYDROCHLOROTHIAZIDE [Concomitant]
     Dosage: 37.5/25 MG

REACTIONS (3)
  - HEMIPARESIS [None]
  - CARDIAC FAILURE CONGESTIVE [None]
  - APHASIA [None]
